FAERS Safety Report 6504762-9 (Version None)
Quarter: 2009Q4

REPORT INFORMATION
  Report Type: 
  Country: None (occurrence: None)
  Receive Date: 20091215
  Receipt Date: 20091130
  Transmission Date: 20100525
  Serious: Yes (Other)
  Sender: FDA-Public Use
  Company Number: B0613557A

PATIENT
  Age: 49 Year
  Sex: Male

DRUGS (4)
  1. MELPHALAN HYDROCHLORIDE [Suspect]
     Indication: DESMOID TUMOUR
     Dosage: 100 MG SINGLE DOSE INTRAVENOUS
     Route: 042
     Dates: start: 20071206, end: 20071206
  2. TUMOR NECROSIS FACTOR INJECTION (TUMOR NECROSIS FACTOR) [Suspect]
     Indication: DESMOID TUMOUR
     Dosage: 2 MG SINGLE DOSE INTRAVENOUS
     Route: 042
     Dates: start: 20071206, end: 20071206
  3. SODIUM CHLORIDE [Concomitant]
  4. ANESTHETIC [Concomitant]

REACTIONS (2)
  - MYOGLOBINAEMIA [None]
  - PERONEAL NERVE PALSY [None]
